FAERS Safety Report 8805686 (Version 1)
Quarter: 2012Q4

REPORT INFORMATION
  Report Type: 
  Country: US (occurrence: US)
  Receive Date: 20120924
  Receipt Date: 20120924
  Transmission Date: 20130627
  Serious: No
  Sender: FDA-Public Use
  Company Number: US-009507513-1209USA009096

PATIENT
  Sex: Female

DRUGS (1)
  1. PROVENTIL [Suspect]
     Dosage: 2 sprays every 4 to 6 hours while siting, every hour while walking around
     Route: 055
     Dates: start: 200209

REACTIONS (1)
  - Overdose [Unknown]
